FAERS Safety Report 4295058-7 (Version None)
Quarter: 2004Q1

REPORT INFORMATION
  Report Type: 
  Country: None (occurrence: None)
  Receive Date: 20040213
  Receipt Date: 20040130
  Transmission Date: 20041129
  Serious: Yes (Hospitalization)
  Sender: FDA-Public Use
  Company Number: 203828

PATIENT
  Age: 39 Year
  Sex: Male
  Weight: 99.3 kg

DRUGS (7)
  1. XOLAIR [Suspect]
     Indication: ASTHMA
     Dosage: 300 MG, Q2W, SUBCUTANEOUS
     Route: 058
     Dates: start: 20030926, end: 20031208
  2. ADVAIR DISKUS [Concomitant]
  3. PREVACID [Concomitant]
  4. SINGULAIR [Concomitant]
  5. ALBUTEROL NEBULIZER (ALBUTEROL SULFATE, ALBUTEROL) [Concomitant]
  6. PREDNISONE [Concomitant]
  7. DEPO-TESTOSTERONE (TESTOSTERONE CYPIONATE) [Concomitant]

REACTIONS (1)
  - ACUTE MYOCARDIAL INFARCTION [None]
